FAERS Safety Report 4626337-9 (Version None)
Quarter: 2005Q2

REPORT INFORMATION
  Report Type: 
  Country: None (occurrence: None)
  Receive Date: 20050404
  Receipt Date: 20050328
  Transmission Date: 20051028
  Serious: Yes (Other)
  Sender: FDA-Public Use
  Company Number: CA-GLAXOSMITHKLINE-A0551792A

PATIENT
  Age: 56 Year
  Sex: Male

DRUGS (2)
  1. AVODART [Suspect]
     Indication: DRUG USE FOR UNKNOWN INDICATION
     Dosage: .5MG AT NIGHT
  2. FLOMAX [Concomitant]

REACTIONS (3)
  - DECREASED INTEREST [None]
  - DEPRESSION [None]
  - SUICIDAL IDEATION [None]
